FAERS Safety Report 25183996 (Version 4)
Quarter: 2025Q2

REPORT INFORMATION
  Report Type: Spontaneous
  Country: US (occurrence: US)
  Receive Date: 20250410
  Receipt Date: 20250604
  Transmission Date: 20250716
  Serious: Yes (Hospitalization)
  Sender: ALKERMES
  Company Number: US-ALKERMES INC.-ALK-2025-000916

PATIENT
  Age: 68 Year
  Sex: Male

DRUGS (4)
  1. LYBALVI [Suspect]
     Active Substance: OLANZAPINE\SAMIDORPHAN L-MALATE
     Indication: Euphoric mood
     Route: 048
     Dates: start: 202503
  2. UNSPECIFIED INGREDIENT [Concomitant]
     Active Substance: UNSPECIFIED INGREDIENT
     Indication: Product used for unknown indication
     Route: 065
  3. ZOLOFT [Concomitant]
     Active Substance: SERTRALINE HYDROCHLORIDE
     Indication: Product used for unknown indication
     Route: 065
  4. PROZAC [Concomitant]
     Active Substance: FLUOXETINE HYDROCHLORIDE
     Indication: Product used for unknown indication
     Route: 065

REACTIONS (15)
  - Cerebrovascular accident [Recovering/Resolving]
  - Diplopia [Unknown]
  - Dystonia [Unknown]
  - Hypoaesthesia [Recovering/Resolving]
  - Mouth injury [Recovering/Resolving]
  - Blepharospasm [Recovering/Resolving]
  - Sleep disorder [Recovering/Resolving]
  - Facial asymmetry [Recovering/Resolving]
  - Sexual dysfunction [Recovering/Resolving]
  - Fear-related avoidance of activities [Recovering/Resolving]
  - Off label use [Unknown]
  - Expired product administered [Unknown]
  - Speech disorder [Recovering/Resolving]
  - Increased appetite [Recovering/Resolving]
  - Tremor [Unknown]

NARRATIVE: CASE EVENT DATE: 20250301
